FAERS Safety Report 4695813-5 (Version None)
Quarter: 2005Q2

REPORT INFORMATION
  Report Type: 
  Country: None (occurrence: None)
  Receive Date: 20050620
  Receipt Date: 20050620
  Transmission Date: 20051028
  Serious: No
  Sender: FDA-Public Use
  Company Number: None

PATIENT
  Age: 60 Year
  Sex: Female
  Weight: 56.6996 kg

DRUGS (1)
  1. NAFCILLIN-SANDOZ [Suspect]
     Indication: OSTEOMYELITIS
     Dosage: 2 GM IV Q 4
     Dates: start: 20050526, end: 20050614

REACTIONS (3)
  - BLOOD CREATININE INCREASED [None]
  - EOSINOPHILIA [None]
  - HYPOKALAEMIA [None]
